FAERS Safety Report 9209192 (Version 1)
Quarter: 2013Q2

REPORT INFORMATION
  Report Type: Spontaneous
  Country: US (occurrence: US)
  Receive Date: 20130404
  Receipt Date: 20130404
  Transmission Date: 20140414
  Serious: No
  Sender: FDA-Public Use
  Company Number: US-TEVA-396035USA

PATIENT
  Age: 35 Year
  Sex: Female
  Weight: 97.61 kg

DRUGS (4)
  1. PLAN B ONE-STEP [Suspect]
     Indication: POST COITAL CONTRACEPTION
     Dosage: 1.5 MILLIGRAM DAILY;
     Route: 048
     Dates: start: 20130315, end: 20130315
  2. PAXIL [Concomitant]
     Indication: ANXIETY
  3. PAXIL [Concomitant]
     Indication: DEPRESSION
  4. PREVACID [Concomitant]
     Indication: GASTROOESOPHAGEAL REFLUX DISEASE

REACTIONS (1)
  - Menstruation irregular [Recovered/Resolved]
